FAERS Safety Report 7517574-4 (Version None)
Quarter: 2011Q2

REPORT INFORMATION
  Report Type: 
  Country: None (occurrence: None)
  Receive Date: 20110601
  Receipt Date: 20110526
  Transmission Date: 20111010
  Serious: Yes (Hospitalization)
  Sender: FDA-Public Use
  Company Number: US-ABBOTT-11P-163-0729273-00

PATIENT
  Sex: Female
  Weight: 83.082 kg

DRUGS (11)
  1. LOMOTIL [Concomitant]
     Indication: DIARRHOEA
  2. VITAMIN D [Concomitant]
     Indication: VITAMIN SUPPLEMENTATION
  3. DEPAKOTE ER [Suspect]
     Indication: CONVULSION
     Route: 048
     Dates: start: 19900101
  4. ENABLEX [Concomitant]
     Indication: URINARY INCONTINENCE
  5. SYNTHROID [Concomitant]
     Indication: HYPOTHYROIDISM
  6. ACTONEL [Concomitant]
     Indication: OSTEOPOROSIS
  7. BIOTIN FORTE WITH ZINC [Concomitant]
     Indication: VITAMIN SUPPLEMENTATION
  8. LEXAPRO [Concomitant]
     Indication: DEPRESSION
  9. AZULFIDINE [Concomitant]
     Indication: DIARRHOEA
  10. PANTOPRAZOLE [Concomitant]
     Indication: GASTROOESOPHAGEAL REFLUX DISEASE
  11. SUPER B COMPLEX WITH CALCIUM [Concomitant]
     Indication: VITAMIN SUPPLEMENTATION

REACTIONS (3)
  - COLITIS ULCERATIVE [None]
  - MEDICATION RESIDUE [None]
  - DIARRHOEA [None]
